FAERS Safety Report 24032089 (Version 5)
Quarter: 2024Q3

REPORT INFORMATION
  Report Type: Spontaneous
  Country: US (occurrence: US)
  Receive Date: 20240630
  Receipt Date: 20240729
  Transmission Date: 20241017
  Serious: Yes (Other)
  Sender: UROGEN PHARMA
  Company Number: US-UROGEN PHARMA LTD.-2024-UGN-000087

PATIENT

DRUGS (10)
  1. JELMYTO [Suspect]
     Active Substance: MITOMYCIN
     Indication: Transitional cell cancer of the renal pelvis and ureter
     Dosage: INSTILLATION, ONCE A WEEK
     Dates: start: 20240509, end: 20240509
  2. JELMYTO [Suspect]
     Active Substance: MITOMYCIN
     Dosage: INSTILLATION, ONCE A WEEK
     Dates: start: 20240516, end: 20240516
  3. JELMYTO [Suspect]
     Active Substance: MITOMYCIN
     Dosage: INSTILLATION, ONCE A WEEK
     Dates: start: 20240523, end: 20240523
  4. JELMYTO [Suspect]
     Active Substance: MITOMYCIN
     Dosage: INSTILLATION, ONCE A WEEK
     Dates: start: 20240530, end: 20240530
  5. JELMYTO [Suspect]
     Active Substance: MITOMYCIN
     Dosage: INSTILLATION, ONCE A WEEK
     Dates: start: 20240606, end: 20240606
  6. NORVASC [Concomitant]
     Active Substance: AMLODIPINE BESYLATE
     Indication: Product used for unknown indication
     Dosage: UNK
     Route: 065
  7. SYNTHROID [Concomitant]
     Active Substance: LEVOTHYROXINE SODIUM
     Indication: Product used for unknown indication
     Dosage: UNK
     Route: 065
  8. COZAAR [Concomitant]
     Active Substance: LOSARTAN POTASSIUM
     Indication: Product used for unknown indication
     Dosage: UNK
     Route: 065
  9. TOPROL XL [Concomitant]
     Active Substance: METOPROLOL SUCCINATE
     Indication: Product used for unknown indication
     Dosage: UNK
     Route: 065
  10. IRON [Suspect]
     Active Substance: IRON
     Indication: Haemorrhage
     Dosage: UNK

REACTIONS (4)
  - Failure to thrive [Unknown]
  - Bacterial infection [Unknown]
  - Illness [Unknown]
  - Urinary tract infection [Unknown]

NARRATIVE: CASE EVENT DATE: 20240101
